FAERS Safety Report 18271993 (Version 1)
Quarter: 2020Q3

REPORT INFORMATION
  Report Type: Spontaneous
  Country: US (occurrence: US)
  Receive Date: 20200915
  Receipt Date: 20200915
  Transmission Date: 20201103
  Serious: No
  Sender: FDA-Public Use
  Company Number: None

PATIENT
  Age: 40 Year
  Sex: Female
  Weight: 58.5 kg

DRUGS (1)
  1. EMGALITY [Suspect]
     Active Substance: GALCANEZUMAB-GNLM
     Indication: MIGRAINE
     Dosage: ?          QUANTITY:1 INJECTION(S);OTHER FREQUENCY:ONCE PER MONTH;?
     Route: 058
     Dates: start: 20200318, end: 20200908

REACTIONS (6)
  - Myalgia [None]
  - Injection site reaction [None]
  - Hypoaesthesia [None]
  - Pruritus [None]
  - Injection site swelling [None]
  - Rash [None]

NARRATIVE: CASE EVENT DATE: 20200909
